FAERS Safety Report 6295858-8 (Version None)
Quarter: 2009Q3

REPORT INFORMATION
  Report Type: 
  Country: None (occurrence: None)
  Receive Date: 20090804
  Receipt Date: 20090728
  Transmission Date: 20100115
  Serious: Yes (Death, Other)
  Sender: FDA-Public Use
  Company Number: US-ROCHE-644437

PATIENT
  Sex: Female
  Weight: 156 kg

DRUGS (2)
  1. CAPECITABINE [Suspect]
     Indication: BREAST CANCER
     Dosage: 1000 MG AM, 1000 MG PM
     Route: 048
     Dates: start: 20090324
  2. CAPECITABINE [Suspect]
     Dosage: START DATE REPORTED AS 10 DAYS
     Route: 048

REACTIONS (4)
  - BREAST CANCER [None]
  - DEMENTIA [None]
  - MUCOSAL INFLAMMATION [None]
  - PANCYTOPENIA [None]
